FAERS Safety Report 10377411 (Version 1)
Quarter: 2014Q3

REPORT INFORMATION
  Report Type: Spontaneous
  Country: JP (occurrence: JP)
  Receive Date: 20140812
  Receipt Date: 20140812
  Transmission Date: 20150326
  Serious: Yes (Other)
  Sender: FDA-Public Use
  Company Number: PHHY2012JP134340

PATIENT
  Sex: Female

DRUGS (3)
  1. GLIVEC [Suspect]
     Active Substance: IMATINIB MESYLATE
     Indication: CHRONIC MYELOID LEUKAEMIA
     Dosage: 400 MG, DAILY
     Dates: start: 201007
  2. URSO [Concomitant]
     Active Substance: URSODIOL
     Dosage: 150 MG
  3. URSO [Concomitant]
     Active Substance: URSODIOL
     Dosage: 300 MG

REACTIONS (4)
  - Multiple sclerosis [Unknown]
  - Aspartate aminotransferase increased [Unknown]
  - Alanine aminotransferase increased [Unknown]
  - Dementia [Unknown]
